FAERS Safety Report 11888332 (Version 2)
Quarter: 2016Q2

REPORT INFORMATION
  Report Type: Spontaneous
  Country: US (occurrence: US)
  Receive Date: 20160105
  Receipt Date: 20160411
  Transmission Date: 20160815
  Serious: Yes (Hospitalization)
  Sender: FDA-Public Use
  Company Number: US-ACTAVIS-2015-28862

PATIENT
  Age: 73 Year
  Sex: Female
  Weight: 50 kg

DRUGS (5)
  1. PROAIR HFA [Concomitant]
     Active Substance: ALBUTEROL SULFATE
     Indication: PRODUCT USED FOR UNKNOWN INDICATION
     Dosage: UNK, UNKNOWN
     Route: 065
  2. VFEND [Suspect]
     Active Substance: VORICONAZOLE
     Indication: RESPIRATORY TRACT INFECTION FUNGAL
     Dosage: 200 MG, TWICE A DAY
     Route: 065
     Dates: start: 20151127
  3. OXYCODONE-ACETAMINOPHEN (AELLC) [Suspect]
     Active Substance: ACETAMINOPHEN\OXYCODONE HYDROCHLORIDE
     Indication: BACK PAIN
     Dosage: UNKNOWN, DAILY
     Route: 065
  4. OMEPRAZOLE. [Concomitant]
     Active Substance: OMEPRAZOLE
     Indication: GASTROOESOPHAGEAL REFLUX DISEASE
     Dosage: UNK, UNKNOWN
     Route: 065
  5. VITAMINS                           /90003601/ [Concomitant]
     Active Substance: VITAMINS
     Indication: PRODUCT USED FOR UNKNOWN INDICATION
     Dosage: UNK, UNKNOWN
     Route: 065

REACTIONS (4)
  - Vomiting [Unknown]
  - Vision blurred [Recovered/Resolved]
  - Abdominal pain [Recovering/Resolving]
  - Visual impairment [Unknown]

NARRATIVE: CASE EVENT DATE: 201512
